FAERS Safety Report 7050178-9 (Version None)
Quarter: 2010Q4

REPORT INFORMATION
  Report Type: 
  Country: None (occurrence: None)
  Receive Date: 20101018
  Receipt Date: 20101011
  Transmission Date: 20110411
  Serious: Yes (Other)
  Sender: FDA-Public Use
  Company Number: US-AMGEN LTD.-QUU445008

PATIENT

DRUGS (2)
  1. NPLATE [Suspect]
     Indication: IDIOPATHIC THROMBOCYTOPENIC PURPURA
     Dosage: 1 A?G/KG, UNK
     Dates: start: 20100701, end: 20100715
  2. DANAZOL [Concomitant]
     Dosage: UNK UNK, UNK
     Dates: start: 20030101

REACTIONS (3)
  - HAEMATOLOGICAL MALIGNANCY [None]
  - MULTIPLE MYELOMA [None]
  - RENAL FAILURE ACUTE [None]
